FAERS Safety Report 7018624-4 (Version None)
Quarter: 2010Q3

REPORT INFORMATION
  Report Type: 
  Country: None (occurrence: None)
  Receive Date: 20100928
  Receipt Date: 20100922
  Transmission Date: 20110219
  Serious: Yes (Other)
  Sender: FDA-Public Use
  Company Number: SG-MERCK-1009USA04261

PATIENT

DRUGS (1)
  1. LAROPIPRANT AND NIACIN [Suspect]
     Indication: HIGH DENSITY LIPOPROTEIN DECREASED
     Route: 048
     Dates: start: 20100301, end: 20100922

REACTIONS (1)
  - THROMBOCYTOPENIA [None]
